FAERS Safety Report 23635983 (Version 1)
Quarter: 2024Q1

REPORT INFORMATION
  Report Type: Spontaneous
  Country: IT (occurrence: IT)
  Receive Date: 20240315
  Receipt Date: 20240315
  Transmission Date: 20240410
  Serious: Yes (Other)
  Sender: FDA-Public Use
  Company Number: IT-MYLANLABS-2024M1019819

PATIENT
  Age: 88 Year
  Sex: Female

DRUGS (1)
  1. CREON [Suspect]
     Active Substance: PANCRELIPASE AMYLASE\PANCRELIPASE LIPASE\PANCRELIPASE PROTEASE
     Indication: Pancreatic failure
     Dosage: CREON 10.000
     Route: 048
     Dates: start: 201811

REACTIONS (5)
  - Dysentery [Unknown]
  - Incorrect dose administered [Unknown]
  - Product availability issue [Unknown]
  - Diarrhoea [Unknown]
  - Weight decreased [Unknown]
